FAERS Safety Report 8207427-0 (Version None)
Quarter: 2012Q1

REPORT INFORMATION
  Report Type: 
  Country: None (occurrence: None)
  Receive Date: 20120314
  Receipt Date: 20120301
  Transmission Date: 20120608
  Serious: Yes (Other)
  Sender: FDA-Public Use
  Company Number: JP-ASTELLAS-2011US007435

PATIENT
  Sex: Male

DRUGS (9)
  1. IMIPENEM AND CILASTATIN SODIUM [Suspect]
     Dosage: 0.24 G, UID/QD
     Route: 065
     Dates: start: 20110711, end: 20110721
  2. FRESH FROZEN PLASMA [Concomitant]
     Indication: PRODUCT USED FOR UNKNOWN INDICATION
     Dosage: UNK
     Route: 065
     Dates: start: 20110327, end: 20110716
  3. MEROPENEM [Suspect]
     Indication: SEPSIS
     Dosage: 0.36 G, UNKNOWN/D
     Route: 065
     Dates: start: 20110316, end: 20110321
  4. SEVOFLURANE [Concomitant]
     Indication: PRODUCT USED FOR UNKNOWN INDICATION
     Dosage: UNK
     Route: 065
  5. PLATELETS, CONCENTRATED [Concomitant]
     Indication: PRODUCT USED FOR UNKNOWN INDICATION
     Dosage: UNK
     Route: 065
  6. IMIPENEM AND CILASTATIN SODIUM [Suspect]
     Indication: SEPSIS
     Dosage: 0.24 G, UNKNOWN/D
     Route: 065
     Dates: start: 20110321, end: 20110321
  7. AMBISOME [Suspect]
     Indication: BLOOD BETA-D-GLUCAN ABNORMAL
     Dosage: 7.5 MG, UNKNOWN/D
     Route: 041
     Dates: start: 20110324, end: 20110329
  8. RED BLOOD CELLS, CONCENTRATED [Concomitant]
     Indication: PRODUCT USED FOR UNKNOWN INDICATION
     Dosage: UNK
     Route: 065
  9. LANSOPRAZOLE [Concomitant]
     Indication: PRODUCT USED FOR UNKNOWN INDICATION
     Dosage: UNK
     Route: 065
     Dates: start: 20110622, end: 20110719

REACTIONS (1)
  - LACTASE DEFICIENCY [None]
